FAERS Safety Report 6690141-0 (Version None)
Quarter: 2010Q2

REPORT INFORMATION
  Report Type: 
  Country: None (occurrence: None)
  Receive Date: 20100421
  Receipt Date: 20100417
  Transmission Date: 20101027
  Serious: Yes (Death)
  Sender: FDA-Public Use
  Company Number: PHHY2010IN24168

PATIENT
  Age: 9 Year
  Sex: Male

DRUGS (1)
  1. ASUNRA [Suspect]
     Dosage: 1 TABLET OF 400 MG + 1 TABLET OF 100 MG
     Route: 048

REACTIONS (1)
  - MYOCARDIAL INFARCTION [None]
